APPROVED DRUG PRODUCT: DAUNORUBICIN HYDROCHLORIDE
Active Ingredient: DAUNORUBICIN HYDROCHLORIDE
Strength: EQ 50MG BASE/VIAL
Dosage Form/Route: INJECTABLE;INJECTION
Application: A064212 | Product #002
Applicant: TEVA PARENTERAL MEDICINES INC
Approved: May 3, 1999 | RLD: No | RS: No | Type: DISCN